FAERS Safety Report 6310917-9 (Version None)
Quarter: 2009Q3

REPORT INFORMATION
  Report Type: 
  Country: None (occurrence: None)
  Receive Date: 20090812
  Receipt Date: 20090727
  Transmission Date: 20100115
  Serious: Yes (Other)
  Sender: FDA-Public Use
  Company Number: 09-001285

PATIENT

DRUGS (1)
  1. TACLONEX [Suspect]
     Indication: PSORIASIS
     Dosage: 1 APPLICATION, 1 IN QD, TOPICAL
     Route: 061
     Dates: start: 20090402, end: 20090412

REACTIONS (1)
  - TENSION HEADACHE [None]
